FAERS Safety Report 5844441-4 (Version None)
Quarter: 2008Q3

REPORT INFORMATION
  Report Type: 
  Country: None (occurrence: None)
  Receive Date: 20080813
  Receipt Date: 20080806
  Transmission Date: 20090109
  Serious: Yes (Other)
  Sender: FDA-Public Use
  Company Number: FR-AMGEN-US301143

PATIENT
  Sex: Female

DRUGS (1)
  1. ENBREL [Suspect]
     Indication: ANKYLOSING SPONDYLITIS
     Dosage: LYOPHILIZED/50 MG 1 TIME PER WEEK
     Route: 058
     Dates: start: 20061101, end: 20080801

REACTIONS (10)
  - EYE PAIN [None]
  - FATIGUE [None]
  - HEADACHE [None]
  - HYPOTHYROIDISM [None]
  - INJECTION SITE PAIN [None]
  - MACULAR DEGENERATION [None]
  - METAMORPHOPSIA [None]
  - TONSILLITIS [None]
  - URINARY TRACT INFECTION [None]
  - VERTIGO [None]
